FAERS Safety Report 6105094-3 (Version None)
Quarter: 2009Q1

REPORT INFORMATION
  Report Type: 
  Country: None (occurrence: None)
  Receive Date: 20090306
  Receipt Date: 20090227
  Transmission Date: 20090719
  Serious: Yes (Hospitalization, Other)
  Sender: FDA-Public Use
  Company Number: BR-ROCHE-617601

PATIENT
  Age: 55 Year
  Sex: Female
  Weight: 64 kg

DRUGS (8)
  1. RIVOTRIL [Suspect]
     Indication: DEPRESSION
     Dosage: OTHER INDICATION: HYPERTENSION, ROUTE, STRENGTH, DOSE NOT KNOWN
     Route: 065
     Dates: start: 19950101, end: 20040101
  2. RIVOTRIL [Suspect]
     Dosage: ROUTE: ORAL
     Route: 065
     Dates: start: 20040101, end: 20080101
  3. RIVOTRIL [Suspect]
     Dosage: ROUTE: ORAL, BATCH NUMBER: RJ0930.
     Route: 065
     Dates: start: 20080101
  4. PASSIFLORA INCARNATA [Suspect]
     Indication: DRUG USE FOR UNKNOWN INDICATION
     Dosage: USED PER 3 DAYS DURING RIVOTRIL INTERRUPTION.
     Route: 065
  5. WARFARIN SODIUM [Concomitant]
     Indication: LABYRINTHITIS
     Dosage: 1 TAB DAILY, OTHER INDICATION: TINNITUS
     Route: 048
     Dates: start: 19890101
  6. ISOFLAVONES [Concomitant]
     Indication: HORMONE REPLACEMENT THERAPY
     Dosage: DRUG REPORTED: ISOFLAVONE, 1 TAB DAILY, DOSE: 80 MG
     Route: 048
     Dates: start: 20080101
  7. CENTRUM [Concomitant]
  8. SIMVASTATIN [Concomitant]
     Indication: BLOOD CHOLESTEROL ABNORMAL
     Dosage: DOSE: 20 MG, 1 TAB DAILY
     Route: 048
     Dates: start: 20070101

REACTIONS (10)
  - ANAEMIA [None]
  - AORTIC DISORDER [None]
  - ASTHENIA [None]
  - BALANCE DISORDER [None]
  - DIZZINESS [None]
  - EPISTAXIS [None]
  - FALL [None]
  - INCREASED APPETITE [None]
  - PAIN IN EXTREMITY [None]
  - TREMOR [None]
